FAERS Safety Report 7752704-0 (Version None)
Quarter: 2011Q3

REPORT INFORMATION
  Report Type: 
  Country: None (occurrence: None)
  Receive Date: 20110915
  Receipt Date: 20110912
  Transmission Date: 20111222
  Serious: Yes (Death, Hospitalization)
  Sender: FDA-Public Use
  Company Number: SE-ROCHE-797115

PATIENT

DRUGS (1)
  1. BEVACIZUMAB [Suspect]
     Dosage: LAST DOSE PRIOR TO SAE: 11 JULY 2011.
     Route: 065
     Dates: start: 20101215

REACTIONS (3)
  - LYMPHANGIOSIS CARCINOMATOSA [None]
  - CARDIAC FAILURE [None]
  - PULMONARY EMBOLISM [None]
